FAERS Safety Report 15707959 (Version 1)
Quarter: 2018Q4

REPORT INFORMATION
  Report Type: Spontaneous
  Country: CA (occurrence: CA)
  Receive Date: 20181211
  Receipt Date: 20181211
  Transmission Date: 20190205
  Serious: Yes (Other)
  Sender: FDA-Public Use
  Company Number: CA-CELLTRION INC.-2018CA018480

PATIENT

DRUGS (7)
  1. INFLECTRA [Suspect]
     Active Substance: INFLIXIMAB-DYYB
     Dosage: 500 MG, CYCLIC EVERY 0, 2, 6 WEEKS, THEN EVERY 8 WEEKS
     Route: 042
     Dates: start: 20180508
  2. INFLECTRA [Suspect]
     Active Substance: INFLIXIMAB-DYYB
     Indication: PSORIATIC ARTHROPATHY
     Dosage: 500 MG, CYCLIC(EVERY 0, 2,6 WEEKS, THEN EVERY 8 WEEKS)
     Route: 042
     Dates: start: 20180109
  3. INFLECTRA [Suspect]
     Active Substance: INFLIXIMAB-DYYB
     Dosage: 500 MG, CYCLIC(EVERY 0, 2,6 WEEKS, THEN EVERY 8 WEEKS)
     Route: 042
     Dates: start: 20180813
  4. INFLECTRA [Suspect]
     Active Substance: INFLIXIMAB-DYYB
     Dosage: 500 MG (EVERY 0, 2, 6 WEEKS, THEN EVERY 8 WEEKS
     Route: 042
     Dates: start: 20180813
  5. INFLECTRA [Suspect]
     Active Substance: INFLIXIMAB-DYYB
     Dosage: 500 MG, CYCLIC EVERY 0, 2, 6 WEEKS, THEN EVERY 8 WEEKS
     Route: 042
     Dates: start: 20180625
  6. INFLECTRA [Suspect]
     Active Substance: INFLIXIMAB-DYYB
     Dosage: 500 MG, CYCLIC(EVERY 0, 2,6 WEEKS, THEN EVERY 8 WEEKS)
     Route: 042
     Dates: start: 20180220
  7. INFLECTRA [Suspect]
     Active Substance: INFLIXIMAB-DYYB
     Dosage: 500MG (PRESCRIBED 600 MG) EVERY 6 WEEKS
     Route: 042
     Dates: start: 20181128

REACTIONS (4)
  - Drug ineffective [Unknown]
  - Inappropriate schedule of product administration [Unknown]
  - Incorrect dose administered [Unknown]
  - Pneumonia [Unknown]

NARRATIVE: CASE EVENT DATE: 20180625
